FAERS Safety Report 21757791 (Version 1)
Quarter: 2022Q4

REPORT INFORMATION
  Report Type: Other
  Country: US (occurrence: None)
  Receive Date: 20221221
  Receipt Date: 20221221
  Transmission Date: 20230112
  Serious: No
  Sender: FDA-Public Use
  Company Number: US-ROCHE-2796484

PATIENT
  Age: 67 Year
  Sex: Male

DRUGS (4)
  1. ALTEPLASE [Suspect]
     Active Substance: ALTEPLASE
     Indication: COVID-19
     Route: 042
  2. ALTEPLASE [Suspect]
     Active Substance: ALTEPLASE
     Indication: Thrombosis
  3. HEPARIN [Concomitant]
     Active Substance: HEPARIN SODIUM
  4. ARGATROBAN [Concomitant]
     Active Substance: ARGATROBAN

REACTIONS (2)
  - Off label use [Unknown]
  - No adverse event [Unknown]
